FAERS Safety Report 5469880-5 (Version None)
Quarter: 2007Q3

REPORT INFORMATION
  Report Type: 
  Country: None (occurrence: None)
  Receive Date: 20070927
  Receipt Date: 20070918
  Transmission Date: 20080115
  Serious: Yes (Other)
  Sender: FDA-Public Use
  Company Number: RU-SHR-RU-2007-035873

PATIENT

DRUGS (3)
  1. BUSULFAN [Suspect]
     Indication: BONE MARROW CONDITIONING REGIMEN
     Dosage: 8 MG/KG, OTHER
     Route: 042
  2. FLUDARA [Suspect]
     Indication: BONE MARROW CONDITIONING REGIMEN
     Dosage: 180 MG/KG, UNK
  3. CYCLOSPORINE [Concomitant]
     Dosage: 3 MG/KG, UNK

REACTIONS (1)
  - ACUTE GRAFT VERSUS HOST DISEASE [None]
